FAERS Safety Report 13769985 (Version 2)
Quarter: 2017Q3

REPORT INFORMATION
  Report Type: Spontaneous
  Country: IL (occurrence: IL)
  Receive Date: 20170719
  Receipt Date: 20170822
  Transmission Date: 20171127
  Serious: Yes (Other)
  Sender: FDA-Public Use
  Company Number: IL-SA-2017SA127378

PATIENT
  Age: 63 Year
  Sex: Male

DRUGS (2)
  1. BUSULFAN. [Concomitant]
     Active Substance: BUSULFAN
  2. THYMOGLOBULINE [Suspect]
     Active Substance: LAPINE T-LYMPHOCYTE IMMUNE GLOBULIN
     Indication: ALLOGENIC BONE MARROW TRANSPLANTATION THERAPY
     Route: 065
     Dates: start: 20170604, end: 20170605

REACTIONS (6)
  - Lung infection [Unknown]
  - Asthenia [Unknown]
  - Body temperature increased [Unknown]
  - Non-cardiogenic pulmonary oedema [Unknown]
  - Dizziness [Unknown]
  - Dyspnoea [Unknown]

NARRATIVE: CASE EVENT DATE: 2017
